FAERS Safety Report 4969074-3 (Version None)
Quarter: 2006Q2

REPORT INFORMATION
  Report Type: 
  Country: None (occurrence: None)
  Receive Date: 20060405
  Receipt Date: 20060321
  Transmission Date: 20061013
  Serious: Yes (Hospitalization)
  Sender: FDA-Public Use
  Company Number: 223487

PATIENT
  Age: 75 Year
  Sex: Female

DRUGS (11)
  1. AVASTIN [Suspect]
     Indication: COLORECTAL CANCER
     Dosage: 7.5 MG/KG, Q3W, INTRAVENOUS
     Route: 042
     Dates: start: 20051129
  2. CAPECITABINE (CAPECITABINE) [Suspect]
     Indication: COLORECTAL CANCER
     Dosage: 2500 MG, Q3W, ORAL
     Route: 048
     Dates: start: 20051129
  3. OXALIPLATIN (OXALIPATIN) [Suspect]
     Indication: COLORECTAL CANCER
     Dosage: 193 MG, Q3W, INTRAVENOUS
     Route: 042
     Dates: start: 20051129
  4. OMPERAZOLE (OMPERAZOLE) [Concomitant]
  5. FENTANYL (FENTANYL CITRATE) [Concomitant]
  6. WARFARIN SODIUM [Concomitant]
  7. FUROSEMIDE [Concomitant]
  8. DOCUSATE SODIUM (DOCSATE SODIUM) [Concomitant]
  9. ATORVASTATIN (ATORVASTATIN CALCIUM) [Concomitant]
  10. ACETAMINOPHEN [Concomitant]
  11. ANTICOAGULANT THERAPY (ANTICOAGULANET NOS) [Concomitant]

REACTIONS (8)
  - ASTHENIA [None]
  - DEHYDRATION [None]
  - DIZZINESS [None]
  - FLUID INTAKE REDUCED [None]
  - NAUSEA [None]
  - ORAL INTAKE REDUCED [None]
  - PALLOR [None]
  - VOMITING [None]
